FAERS Safety Report 14320418 (Version 5)
Quarter: 2020Q1

REPORT INFORMATION
  Report Type: Report from Study
  Country: US (occurrence: US)
  Receive Date: 20171222
  Receipt Date: 20200115
  Transmission Date: 20200409
  Serious: No
  Sender: FDA-Public Use
  Company Number: PHEH2017US041016

PATIENT
  Sex: Male

DRUGS (1)
  1. COSENTYX [Suspect]
     Active Substance: SECUKINUMAB
     Indication: PRODUCT USED FOR UNKNOWN INDICATION
     Dosage: UNK UNK, QMO
     Route: 058

REACTIONS (7)
  - Weight decreased [Unknown]
  - Post-traumatic stress disorder [Unknown]
  - Drug ineffective [Unknown]
  - Skin exfoliation [Unknown]
  - Onychoclasis [Unknown]
  - Limb discomfort [Unknown]
  - Psoriasis [Unknown]
